FAERS Safety Report 8183660-1 (Version None)
Quarter: 2012Q1

REPORT INFORMATION
  Report Type: 
  Country: None (occurrence: None)
  Receive Date: 20120305
  Receipt Date: 20120222
  Transmission Date: 20120608
  Serious: Yes (Death)
  Sender: FDA-Public Use
  Company Number: PHHY2012CA016065

PATIENT
  Sex: Male

DRUGS (6)
  1. MORPHINE [Concomitant]
     Dates: start: 20080613
  2. CLOXACILLIN SODIUM [Concomitant]
     Dates: start: 20080618, end: 20080708
  3. OCTREOTIDE ACETATE [Suspect]
     Indication: CHYLOTHORAX
     Dosage: 3UG/HR-21UG/HR
     Route: 042
     Dates: start: 20080618, end: 20080713
  4. FENTANYL [Concomitant]
     Dates: start: 20080617
  5. GENTAMICIN [Concomitant]
     Dates: start: 20080704, end: 20080705
  6. FUROSEMIDE [Concomitant]
     Dates: start: 20080617, end: 20080713

REACTIONS (2)
  - LYMPHANGIECTASIA [None]
  - PULMONARY HYPERTENSION [None]
